FAERS Safety Report 5954803-2 (Version None)
Quarter: 2008Q4

REPORT INFORMATION
  Report Type: 
  Country: None (occurrence: None)
  Receive Date: 20081112
  Receipt Date: 20081031
  Transmission Date: 20090506
  Serious: Yes (Other)
  Sender: FDA-Public Use
  Company Number: 64555/ 213

PATIENT
  Sex: Female

DRUGS (2)
  1. LOVENELLE ONE STEP ( LEVONORGESTREL 1,5 MG TABLET) [Suspect]
     Indication: POST COITAL CONTRACEPTION
     Dates: start: 20070801
  2. PROPECIA [Suspect]
     Indication: ALOPECIA
     Dosage: 1 MG

REACTIONS (5)
  - ABORTION SPONTANEOUS [None]
  - BACK PAIN [None]
  - PATERNAL DRUGS AFFECTING FOETUS [None]
  - PREGNANCY AFTER POST COITAL CONTRACEPTION [None]
  - UNINTENDED PREGNANCY [None]
